FAERS Safety Report 16025683 (Version 1)
Quarter: 2019Q1

REPORT INFORMATION
  Report Type: Spontaneous
  Country: DE (occurrence: DE)
  Receive Date: 20190302
  Receipt Date: 20190302
  Transmission Date: 20190418
  Serious: Yes (Other)
  Sender: FDA-Public Use
  Company Number: DE-AUROBINDO-AUR-APL-2019-009356

PATIENT

DRUGS (4)
  1. VOLTAREN RESINAT [Suspect]
     Active Substance: DICLOFENAC
     Indication: PRODUCT USED FOR UNKNOWN INDICATION
     Dosage: 10 DOSAGE FORM, DAILY DOSE: 10 DF DOSAGE FORM EVERY
     Route: 048
     Dates: start: 20150524, end: 20150524
  2. TOLPERISONA [Suspect]
     Active Substance: TOLPERISONE
     Indication: PRODUCT USED FOR UNKNOWN INDICATION
     Dosage: 1000 MILLIGRAM, DAILY DOSE: 1000 MG MILLIGRAM(S) EVERY
     Route: 048
     Dates: start: 20150524, end: 20150524
  3. IBUDOLOR [Suspect]
     Active Substance: IBUPROFEN
     Indication: PRODUCT USED FOR UNKNOWN INDICATION
     Dosage: 2800 MILLIGRAM, DAILY DOSE: 2800 MG MILLIGRAM(S) EVERY
     Route: 048
     Dates: start: 20150524, end: 20150524
  4. PANTOPRAZOLE GASTRO-RESISTANT TABLETS 20MG [Suspect]
     Active Substance: PANTOPRAZOLE SODIUM
     Indication: PRODUCT USED FOR UNKNOWN INDICATION
     Dosage: 400 MILLIGRAM, DAILY DOSE: 400 MG MILLIGRAM(S) EVERY
     Route: 048
     Dates: start: 20150524, end: 20150524

REACTIONS (3)
  - Suicide attempt [Unknown]
  - Intentional overdose [Unknown]
  - Fatigue [Unknown]

NARRATIVE: CASE EVENT DATE: 20150524
